FAERS Safety Report 25978820 (Version 1)
Quarter: 2025Q4

REPORT INFORMATION
  Report Type: Spontaneous
  Country: EU (occurrence: EU)
  Receive Date: 20251030
  Receipt Date: 20251030
  Transmission Date: 20260118
  Serious: Yes (Other)
  Sender: HETERO
  Company Number: None

PATIENT
  Sex: Female

DRUGS (2)
  1. QUETIAPINE [Interacting]
     Active Substance: QUETIAPINE
     Indication: Product used for unknown indication
     Dosage: 75 MILLIGRAM, QD
     Route: 048
     Dates: start: 202508, end: 202508
  2. OLANZAPINE [Interacting]
     Active Substance: OLANZAPINE
     Indication: Product used for unknown indication
     Dosage: 0.5 MILLIGRAM, QD
     Route: 030
     Dates: start: 202508, end: 202508

REACTIONS (5)
  - Hypotension [Unknown]
  - Somnolence [Unknown]
  - Wrong patient received product [Unknown]
  - Wrong product administered [Unknown]
  - Drug interaction [Unknown]

NARRATIVE: CASE EVENT DATE: 20250801
